FAERS Safety Report 6341039-9 (Version None)
Quarter: 2009Q3

REPORT INFORMATION
  Report Type: 
  Country: None (occurrence: None)
  Receive Date: 20090904
  Receipt Date: 20090902
  Transmission Date: 20100115
  Serious: Yes (Other)
  Sender: FDA-Public Use
  Company Number: A0805677A

PATIENT
  Age: 59 Year
  Sex: Female

DRUGS (5)
  1. ADVAIR HFA [Suspect]
     Indication: ASTHMA
     Dosage: 1PUFF TWICE PER DAY
     Route: 055
     Dates: start: 20050101
  2. PROVENTIL-HFA [Concomitant]
  3. CRESTOR [Concomitant]
  4. TRICOR [Concomitant]
  5. LOTREL [Concomitant]

REACTIONS (2)
  - BLEPHAROSPASM [None]
  - CATARACT [None]
